FAERS Safety Report 7266273-5 (Version None)
Quarter: 2011Q1

REPORT INFORMATION
  Report Type: 
  Country: None (occurrence: None)
  Receive Date: 20110131
  Receipt Date: 20101117
  Transmission Date: 20110831
  Serious: Yes (Hospitalization)
  Sender: FDA-Public Use
  Company Number: BE-AMGEN-BELCT2010006204

PATIENT
  Age: 59 Year
  Sex: Female

DRUGS (13)
  1. ETANERCEPT [Suspect]
     Indication: RHEUMATOID ARTHRITIS
     Dosage: 25 MG, 2 TIMES/WK
     Dates: start: 20060410, end: 20091201
  2. FOLAVIT [Concomitant]
     Dosage: 4 MG, 1X/DAY
     Route: 048
  3. REDOMEX [Concomitant]
     Dosage: 25 MG, 1X/DAY
     Route: 048
  4. ETANERCEPT [Suspect]
     Dosage: 25 MG, 2 TIMES/WK
     Dates: start: 20100323
  5. LEVOTHYROXINE SODIUM [Concomitant]
     Dosage: 100 UG, 1X/DAY
     Route: 048
  6. SPASMOMEN [Concomitant]
     Dosage: UNK
  7. PLAQUENIL [Concomitant]
     Dosage: 200 MG, 1X/DAY
  8. MIXTARD HUMAN 70/30 [Concomitant]
     Dosage: 20 IU, 1X/DAY
     Route: 058
  9. LANTUS [Concomitant]
     Dosage: 40 IU, 1X/DAY
     Route: 058
  10. PRILOSEC [Concomitant]
     Dosage: 20 MG, 1X/DAY
     Route: 048
  11. ACCUPRIL [Concomitant]
     Dosage: 5 MG, 1X/DAY
     Route: 048
     Dates: end: 20100201
  12. LITICAN [Concomitant]
     Dosage: UNK
  13. DOLZAM [Concomitant]
     Dosage: UNK

REACTIONS (1)
  - RENAL FAILURE ACUTE [None]
